FAERS Safety Report 9037795 (Version 4)
Quarter: 2013Q2

REPORT INFORMATION
  Report Type: Spontaneous
  Country: JP (occurrence: JP)
  Receive Date: 20130129
  Receipt Date: 20130405
  Transmission Date: 20140414
  Serious: Yes (Hospitalization)
  Sender: FDA-Public Use
  Company Number: JP-MERCK-1301JPN012920

PATIENT
  Age: 20 Year
  Sex: Male

DRUGS (9)
  1. MIRTAZAPINE [Suspect]
     Indication: DEPRESSION
     Dosage: 15 MG, QD
     Route: 048
     Dates: start: 20121225, end: 20130122
  2. FLUVOXAMINE MALEATE [Concomitant]
     Indication: DEPRESSION
     Dosage: 50 MG, QD
     Route: 048
     Dates: start: 201209, end: 20121126
  3. FLUVOXAMINE MALEATE [Concomitant]
     Dosage: 100 MG,QD
     Route: 048
     Dates: start: 20121127, end: 20121210
  4. FLUVOXAMINE MALEATE [Concomitant]
     Dosage: 150 MG, QD
     Route: 048
     Dates: start: 20121211
  5. ALFACALCIDOL [Concomitant]
     Indication: HYPOCALCAEMIA
     Dosage: 1.25MCG DAILY
     Route: 048
  6. MOSAPRIDE CITRATE [Concomitant]
     Indication: GASTRITIS
     Dosage: 15MG DAILY
     Route: 048
     Dates: start: 201209
  7. ESOMEPRAZOLE MAGNESIUM [Concomitant]
     Indication: GASTRITIS
     Dosage: 20MG DAILY
     Route: 048
     Dates: start: 201209
  8. PHENOBARBITAL [Concomitant]
     Indication: EPILEPSY
     Route: 048
  9. PHENOBARBITAL [Concomitant]
     Dosage: UNK
     Route: 048

REACTIONS (2)
  - Epilepsy [Recovered/Resolved]
  - Epilepsy [Recovered/Resolved]
